FAERS Safety Report 6921221-X (Version None)
Quarter: 2010Q3

REPORT INFORMATION
  Report Type: 
  Country: None (occurrence: None)
  Receive Date: 20100812
  Receipt Date: 20100806
  Transmission Date: 20110219
  Serious: Yes (Other)
  Sender: FDA-Public Use
  Company Number: A0871415A

PATIENT
  Age: 72 Year
  Sex: Male

DRUGS (11)
  1. AVODART [Suspect]
     Indication: BENIGN PROSTATIC HYPERPLASIA
     Dosage: .5MG PER DAY
     Route: 048
     Dates: start: 20100610, end: 20100716
  2. SUDAFED 12 HOUR [Concomitant]
  3. GLUCOPHAGE [Concomitant]
  4. TOPROL-XL [Concomitant]
  5. ZESTRIL [Concomitant]
  6. FLOMAX [Concomitant]
  7. CELEXA [Concomitant]
  8. ZOCOR [Concomitant]
  9. ASPIRIN [Concomitant]
  10. CO Q 10 [Concomitant]
  11. MULTIVITAMIN ONE-A-DAY [Concomitant]

REACTIONS (2)
  - DEAFNESS [None]
  - EAR DISCOMFORT [None]
